FAERS Safety Report 8823437 (Version 2)
Quarter: 2013Q1

REPORT INFORMATION
  Report Type: Spontaneous
  Country: US (occurrence: US)
  Receive Date: 20121003
  Receipt Date: 20130114
  Transmission Date: 20140127
  Serious: Yes (Other)
  Sender: FDA-Public Use
  Company Number: US-ASTRAZENECA-2012SE74349

PATIENT
  Age: 84 Year
  Sex: Female

DRUGS (1)
  1. NEXIUM [Suspect]
     Route: 048
     Dates: start: 2008

REACTIONS (7)
  - Lip neoplasm malignant stage unspecified [Unknown]
  - Barrett^s oesophagus [Unknown]
  - Hypertension [Unknown]
  - Blood cholesterol increased [Unknown]
  - Precancerous cells present [Unknown]
  - Gastrooesophageal reflux disease [Unknown]
  - Intentional drug misuse [Unknown]
